FAERS Safety Report 17476854 (Version 8)
Quarter: 2023Q2

REPORT INFORMATION
  Report Type: Spontaneous
  Country: FR (occurrence: FR)
  Receive Date: 20200228
  Receipt Date: 20230619
  Transmission Date: 20230722
  Serious: Yes (Other)
  Sender: FDA-Public Use
  Company Number: FR-002147023-NVSC2020FR036228

PATIENT
  Age: 42 Year
  Sex: Female

DRUGS (16)
  1. OCTREOTIDE [Suspect]
     Active Substance: OCTREOTIDE
     Indication: Acromegaly
     Dosage: 20 MILLIGRAM
     Route: 030
     Dates: start: 20191105
  2. OCTREOTIDE [Suspect]
     Active Substance: OCTREOTIDE
     Dosage: 20 MILLIGRAM
     Route: 030
     Dates: start: 20191203
  3. OCTREOTIDE [Suspect]
     Active Substance: OCTREOTIDE
     Dosage: 20 MILLIGRAM
     Route: 030
     Dates: start: 20191231
  4. OCTREOTIDE [Suspect]
     Active Substance: OCTREOTIDE
     Dosage: 20 MILLIGRAM
     Route: 030
     Dates: start: 20200127
  5. OCTREOTIDE [Suspect]
     Active Substance: OCTREOTIDE
     Dosage: 20 MILLIGRAM
     Route: 030
     Dates: start: 20200225
  6. OCTREOTIDE [Suspect]
     Active Substance: OCTREOTIDE
     Dosage: 20 MILLIGRAM
     Route: 030
     Dates: start: 20200226
  7. OCTREOTIDE [Suspect]
     Active Substance: OCTREOTIDE
     Dosage: 20 MILLIGRAM
     Route: 030
     Dates: start: 20200325
  8. OCTREOTIDE [Suspect]
     Active Substance: OCTREOTIDE
     Dosage: 20 MILLIGRAM
     Route: 030
     Dates: start: 20200425
  9. OCTREOTIDE [Suspect]
     Active Substance: OCTREOTIDE
     Dosage: UNK
     Route: 065
  10. PAROXETINE [Suspect]
     Active Substance: PAROXETINE
     Indication: Depression
     Dosage: 25 MILLIGRAM, ONCE A DAY
     Route: 065
     Dates: start: 20070101
  11. OCTREOTIDE ACETATE [Suspect]
     Active Substance: OCTREOTIDE ACETATE
     Indication: Product used for unknown indication
     Dosage: UNK
     Route: 065
  12. CETIRIZINE [Concomitant]
     Active Substance: CETIRIZINE HYDROCHLORIDE
     Indication: Product used for unknown indication
     Dosage: 10 MILLIGRAM, ONCE A DAY
     Route: 065
     Dates: start: 20070101
  13. DOXYCYCLINE [Concomitant]
     Active Substance: DOXYCYCLINE
     Indication: Product used for unknown indication
     Dosage: 100 MILLIGRAM, ONCE A DAY
     Route: 065
     Dates: start: 20070101
  14. HYDROCORTISONE [Concomitant]
     Active Substance: HYDROCORTISONE
     Indication: Blood corticotrophin decreased
     Dosage: 20 MILLIGRAM, ONCE A DAY
     Route: 065
     Dates: start: 20190604
  15. TRAMADOL [Concomitant]
     Active Substance: TRAMADOL
     Indication: Ankylosing spondylitis
     Dosage: 200 MILLIGRAM, ONCE A DAY
     Route: 065
     Dates: start: 20070101
  16. CHOLECALCIFEROL [Concomitant]
     Active Substance: CHOLECALCIFEROL
     Indication: Supplementation therapy
     Dosage: UNK, EVERY THREE MONTHS
     Route: 065

REACTIONS (11)
  - Haematochezia [Not Recovered/Not Resolved]
  - Haemoptysis [Not Recovered/Not Resolved]
  - Constipation [Not Recovered/Not Resolved]
  - Mucous stools [Not Recovered/Not Resolved]
  - Proctitis [Not Recovered/Not Resolved]
  - Alopecia [Not Recovered/Not Resolved]
  - Dizziness [Not Recovered/Not Resolved]
  - Headache [Not Recovered/Not Resolved]
  - Tinnitus [Not Recovered/Not Resolved]
  - Laryngeal disorder [Not Recovered/Not Resolved]
  - Mucosal haemorrhage [Not Recovered/Not Resolved]

NARRATIVE: CASE EVENT DATE: 20191105
